FAERS Safety Report 14246605 (Version 1)
Quarter: 2017Q4

REPORT INFORMATION
  Report Type: Spontaneous
  Country: US (occurrence: US)
  Receive Date: 20171201
  Receipt Date: 20171201
  Transmission Date: 20180321
  Serious: Yes (Other)
  Sender: FDA-Public Use
  Company Number: None

PATIENT
  Age: 49 Year
  Sex: Female
  Weight: 51.75 kg

DRUGS (6)
  1. XANAX [Concomitant]
     Active Substance: ALPRAZOLAM
  2. MAGNESIUM IV INFUSION [Suspect]
     Active Substance: MAGNESIUM SULFATE
     Indication: MIGRAINE
     Route: 042
     Dates: start: 20171128, end: 20171128
  3. TORADOL [Concomitant]
     Active Substance: KETOROLAC TROMETHAMINE
  4. VIT. D, FOLIC ACID, VIT. B - COMPLEX [Concomitant]
     Active Substance: FOLIC ACID\VITAMINS
  5. COD LIVER OIL [Concomitant]
     Active Substance: COD LIVER OIL
  6. RELPAX [Concomitant]
     Active Substance: ELETRIPTAN HYDROBROMIDE

REACTIONS (7)
  - Feeling hot [None]
  - Feeling abnormal [None]
  - Infusion [None]
  - Hyperhidrosis [None]
  - Flushing [None]
  - Dizziness [None]
  - Hot flush [None]

NARRATIVE: CASE EVENT DATE: 20171128
